FAERS Safety Report 15918108 (Version 1)
Quarter: 2019Q1

REPORT INFORMATION
  Report Type: Spontaneous
  Country: PT (occurrence: PT)
  Receive Date: 20190205
  Receipt Date: 20190205
  Transmission Date: 20190417
  Serious: Yes (Other)
  Sender: FDA-Public Use
  Company Number: PT-TAIHO ONCOLOGY  INC-IM-2019-00040

PATIENT
  Age: 53 Year
  Sex: Male

DRUGS (1)
  1. LONSURF [Suspect]
     Active Substance: TIPIRACIL HYDROCHLORIDE\TRIFLURIDINE
     Indication: NEOPLASM MALIGNANT
     Dosage: 120 MG, UNK
     Route: 065

REACTIONS (11)
  - Blood cholesterol increased [Recovering/Resolving]
  - Vomiting [Recovering/Resolving]
  - Ocular icterus [Recovering/Resolving]
  - Liver function test abnormal [Recovering/Resolving]
  - Diarrhoea [Recovering/Resolving]
  - Chromaturia [Recovering/Resolving]
  - Anaemia [Recovering/Resolving]
  - Pruritus [Recovering/Resolving]
  - Headache [Recovering/Resolving]
  - Dizziness [Recovering/Resolving]
  - Bile duct obstruction [Recovering/Resolving]

NARRATIVE: CASE EVENT DATE: 2019
